FAERS Safety Report 23831402 (Version 1)
Quarter: 2024Q2

REPORT INFORMATION
  Report Type: Report from Study
  Country: CL (occurrence: None)
  Receive Date: 20240508
  Receipt Date: 20240508
  Transmission Date: 20240715
  Serious: Yes (Other)
  Sender: FDA-Public Use
  Company Number: 2024A102908

PATIENT
  Age: 26539 Day
  Sex: Female

DRUGS (2)
  1. TAGRISSO [Suspect]
     Active Substance: OSIMERTINIB
     Indication: Lung cancer metastatic
     Route: 048
     Dates: start: 20220602
  2. RIVAROXABAN [Concomitant]
     Active Substance: RIVAROXABAN
     Indication: Thrombosis

REACTIONS (2)
  - Peripheral venous disease [Unknown]
  - Thrombosis [Unknown]

NARRATIVE: CASE EVENT DATE: 20220801
